FAERS Safety Report 21489165 (Version 3)
Quarter: 2022Q4

REPORT INFORMATION
  Report Type: Report from Study
  Country: US (occurrence: US)
  Receive Date: 20221021
  Receipt Date: 20221207
  Transmission Date: 20230113
  Serious: Yes (Other)
  Sender: FDA-Public Use
  Company Number: US-002147023-NVSC2022US236483

PATIENT
  Age: 67 Year
  Sex: Female

DRUGS (1)
  1. COSENTYX [Suspect]
     Active Substance: SECUKINUMAB
     Indication: Psoriatic arthropathy
     Dosage: 150 MG, OTHER, WEEKLY FOR 5 WEEKS, THEN EVERY 4 WEEKS
     Route: 058
     Dates: start: 202204

REACTIONS (6)
  - Spinal fracture [Unknown]
  - Back pain [Unknown]
  - Fall [Recovering/Resolving]
  - Clavicle fracture [Recovering/Resolving]
  - Rib fracture [Recovering/Resolving]
  - Feeling abnormal [Unknown]

NARRATIVE: CASE EVENT DATE: 20220801
